FAERS Safety Report 21556475 (Version 5)
Quarter: 2022Q4

REPORT INFORMATION
  Report Type: Report from Study
  Country: DE (occurrence: DE)
  Receive Date: 20221104
  Receipt Date: 20221208
  Transmission Date: 20230113
  Serious: Yes (Other)
  Sender: FDA-Public Use
  Company Number: DE-KYOWAKIRIN-2022BKK017103

PATIENT

DRUGS (64)
  1. POTELIGEO [Suspect]
     Active Substance: MOGAMULIZUMAB-KPKC
     Indication: Cutaneous T-cell lymphoma
     Dosage: 60 MG (1 MG/KG,CYCLE 1 DAY 1)
     Route: 065
     Dates: start: 20220315
  2. POTELIGEO [Suspect]
     Active Substance: MOGAMULIZUMAB-KPKC
     Dosage: 60 MG (1MG/KG, CYCLE 1 DAY 8)
     Route: 065
     Dates: start: 20220412
  3. POTELIGEO [Suspect]
     Active Substance: MOGAMULIZUMAB-KPKC
     Dosage: 60 MG (1MG/KG,CYCLE 1 DAY 15)
     Route: 065
     Dates: start: 20220419
  4. POTELIGEO [Suspect]
     Active Substance: MOGAMULIZUMAB-KPKC
     Dosage: 60 MG (1 MG/KG,CYCLE 1 DAY 22)
     Route: 065
     Dates: start: 20220426
  5. POTELIGEO [Suspect]
     Active Substance: MOGAMULIZUMAB-KPKC
     Dosage: 60 MG(1 MG/KG, CYCLE 2 DAY 1)
     Route: 065
     Dates: start: 20220503
  6. POTELIGEO [Suspect]
     Active Substance: MOGAMULIZUMAB-KPKC
     Dosage: 60 MG (1 MG/KG,CYCLE 2 DAY 15)
     Route: 065
     Dates: start: 20220517
  7. POTELIGEO [Suspect]
     Active Substance: MOGAMULIZUMAB-KPKC
     Dosage: 60 MG (1 MG/KG, CYCLE 3 DAY 1)
     Route: 065
     Dates: start: 20220531
  8. POTELIGEO [Suspect]
     Active Substance: MOGAMULIZUMAB-KPKC
     Dosage: 60 MG (1MG/KG, CYCLE 3 DAY 15)
     Route: 065
     Dates: start: 20220614
  9. POTELIGEO [Suspect]
     Active Substance: MOGAMULIZUMAB-KPKC
     Dosage: 60 MG ( 1MG/KG, CYCLE 4 DAY 1)
     Route: 065
     Dates: start: 20220719
  10. POTELIGEO [Suspect]
     Active Substance: MOGAMULIZUMAB-KPKC
     Dosage: 60 MG ( 1MG/KG,CYCLE 4 DAY 15)
     Route: 065
     Dates: start: 20220802
  11. POTELIGEO [Suspect]
     Active Substance: MOGAMULIZUMAB-KPKC
     Dosage: 60 MG (1MG/KG, CYCLE 5 DAY 1)
     Route: 065
     Dates: start: 20220816
  12. POTELIGEO [Suspect]
     Active Substance: MOGAMULIZUMAB-KPKC
     Dosage: UNK (CYCLE 5 DAY 15)
     Route: 065
     Dates: start: 20220830
  13. POTELIGEO [Suspect]
     Active Substance: MOGAMULIZUMAB-KPKC
     Dosage: (CYCLE 6 DAY 1)
     Route: 065
     Dates: start: 20220913
  14. POTELIGEO [Suspect]
     Active Substance: MOGAMULIZUMAB-KPKC
     Dosage: (CYCLE 6 DAY 15)
     Route: 065
     Dates: start: 20220927
  15. POTELIGEO [Suspect]
     Active Substance: MOGAMULIZUMAB-KPKC
     Dosage: (CYCLE 7 DAY 1)
     Route: 065
     Dates: start: 20221011
  16. POTELIGEO [Suspect]
     Active Substance: MOGAMULIZUMAB-KPKC
     Dosage: (CYCLE 7 DAY 15)
     Route: 065
     Dates: start: 20221025
  17. POTELIGEO [Suspect]
     Active Substance: MOGAMULIZUMAB-KPKC
     Dosage: (CYCLE 8 DAY 1)
     Route: 065
     Dates: start: 20221108
  18. POTELIGEO [Suspect]
     Active Substance: MOGAMULIZUMAB-KPKC
     Dosage: (CYCLE 8 DAY 15)
     Route: 065
     Dates: start: 20221122
  19. POTELIGEO [Suspect]
     Active Substance: MOGAMULIZUMAB-KPKC
     Dosage: (CYCLE 9 DAY 1)
     Route: 065
     Dates: start: 20221130
  20. CETIRIZINE HYDROCHLORIDE [Concomitant]
     Active Substance: CETIRIZINE HYDROCHLORIDE
     Indication: Product used for unknown indication
     Dosage: 10 MG, QD
     Route: 065
     Dates: start: 20220315, end: 20220315
  21. CETIRIZINE HYDROCHLORIDE [Concomitant]
     Active Substance: CETIRIZINE HYDROCHLORIDE
     Dosage: 10 MG,QD
     Route: 065
     Dates: start: 20220426, end: 20220426
  22. CETIRIZINE HYDROCHLORIDE [Concomitant]
     Active Substance: CETIRIZINE HYDROCHLORIDE
     Dosage: 10 MG,QD
     Route: 065
     Dates: start: 20220503, end: 20220503
  23. CETIRIZINE HYDROCHLORIDE [Concomitant]
     Active Substance: CETIRIZINE HYDROCHLORIDE
     Dosage: 10 MG,QD
     Route: 065
     Dates: start: 20220517, end: 20220517
  24. CETIRIZINE HYDROCHLORIDE [Concomitant]
     Active Substance: CETIRIZINE HYDROCHLORIDE
     Dosage: 10 MG,QD
     Route: 065
     Dates: start: 20220531, end: 20220601
  25. ACETAMINOPHEN [Concomitant]
     Active Substance: ACETAMINOPHEN
     Indication: Cutaneous T-cell lymphoma
     Dosage: 500 MG, QD
     Route: 065
     Dates: start: 20220315, end: 20220315
  26. ACETAMINOPHEN [Concomitant]
     Active Substance: ACETAMINOPHEN
     Dosage: 500 MG,QD
     Route: 065
     Dates: start: 20220412, end: 20220412
  27. ACETAMINOPHEN [Concomitant]
     Active Substance: ACETAMINOPHEN
     Dosage: 500 MG,QD
     Route: 065
     Dates: start: 20220419, end: 20220419
  28. ACETAMINOPHEN [Concomitant]
     Active Substance: ACETAMINOPHEN
     Dosage: 500 MG,QD
     Route: 065
     Dates: start: 20220426, end: 20220426
  29. ACETAMINOPHEN [Concomitant]
     Active Substance: ACETAMINOPHEN
     Dosage: 1000 MG,QD
     Route: 065
     Dates: start: 20220503, end: 20220503
  30. ACETAMINOPHEN [Concomitant]
     Active Substance: ACETAMINOPHEN
     Dosage: 500 MG,QD
     Route: 065
     Dates: start: 20220517, end: 20220517
  31. ACETAMINOPHEN [Concomitant]
     Active Substance: ACETAMINOPHEN
     Dosage: 500 MG,QD
     Route: 065
     Dates: start: 20220531, end: 20220601
  32. ACETAMINOPHEN [Concomitant]
     Active Substance: ACETAMINOPHEN
     Dosage: 500 MG,QD
     Route: 065
     Dates: start: 20220614, end: 20220614
  33. ACETAMINOPHEN [Concomitant]
     Active Substance: ACETAMINOPHEN
     Dosage: 500 MG,QD
     Route: 065
     Dates: start: 20220719, end: 20220719
  34. ACETAMINOPHEN [Concomitant]
     Active Substance: ACETAMINOPHEN
     Dosage: 500 MG,QD
     Route: 065
     Dates: start: 20220802, end: 20220802
  35. ALPRAZOLAM [Concomitant]
     Active Substance: ALPRAZOLAM
     Indication: Cutaneous T-cell lymphoma
     Dosage: 25 MG, QD
     Route: 065
     Dates: start: 20200203
  36. CLEMASTINE [Concomitant]
     Active Substance: CLEMASTINE
     Indication: Product used for unknown indication
     Dosage: 2 MG, QD
     Route: 065
     Dates: start: 20220315, end: 20220315
  37. CLEMASTINE [Concomitant]
     Active Substance: CLEMASTINE
     Dosage: 2 MG,QD
     Route: 065
     Dates: start: 20220412, end: 20220412
  38. CLEMASTINE [Concomitant]
     Active Substance: CLEMASTINE
     Dosage: 2 MG,QD
     Route: 065
     Dates: start: 20220419, end: 20220419
  39. CLEMASTINE [Concomitant]
     Active Substance: CLEMASTINE
     Dosage: 2 MG,QD
     Route: 065
     Dates: start: 20220503, end: 20220503
  40. PREDNISOLONE [Concomitant]
     Active Substance: PREDNISOLONE
     Indication: Product used for unknown indication
     Dosage: 250 MG, QD
     Route: 065
     Dates: start: 20220315, end: 20220315
  41. PREDNISOLONE [Concomitant]
     Active Substance: PREDNISOLONE
     Dosage: 50 MG,QD
     Route: 065
     Dates: start: 20220412, end: 20220412
  42. PREDNISOLONE [Concomitant]
     Active Substance: PREDNISOLONE
     Dosage: 50 MG,QD
     Route: 065
     Dates: start: 20220419, end: 20220419
  43. SODIUM CHLORIDE [Concomitant]
     Active Substance: SODIUM CHLORIDE
     Indication: Product used for unknown indication
     Dosage: 500 ML, QD
     Route: 065
     Dates: start: 20220315, end: 20220315
  44. MCP [Concomitant]
     Active Substance: METOCLOPRAMIDE HYDROCHLORIDE
     Indication: Product used for unknown indication
     Dosage: 10 MG, TID
     Route: 065
     Dates: start: 20220427, end: 20220428
  45. MCP [Concomitant]
     Active Substance: METOCLOPRAMIDE HYDROCHLORIDE
     Dosage: 10 MG, PRN
     Route: 065
     Dates: start: 20220503, end: 20220505
  46. MCP [Concomitant]
     Active Substance: METOCLOPRAMIDE HYDROCHLORIDE
     Dosage: 10 MG, PRN
     Route: 065
     Dates: start: 20220531, end: 20220531
  47. MCP [Concomitant]
     Active Substance: METOCLOPRAMIDE HYDROCHLORIDE
     Dosage: 10 MG,TID
     Route: 065
     Dates: start: 20220614, end: 20220724
  48. MCP [Concomitant]
     Active Substance: METOCLOPRAMIDE HYDROCHLORIDE
     Dosage: 10 MG, PRN
     Route: 065
     Dates: start: 20220802
  49. ZOPICLONE [Concomitant]
     Active Substance: ZOPICLONE
     Indication: Product used for unknown indication
     Dosage: 3.75 MG, QD
     Route: 065
     Dates: start: 20220504, end: 20220504
  50. ZOPICLONE [Concomitant]
     Active Substance: ZOPICLONE
     Dosage: 3.75 MG, QD
     Route: 065
     Dates: start: 20220531, end: 20220531
  51. ZOPICLONE [Concomitant]
     Active Substance: ZOPICLONE
     Dosage: 3.75 MG, PRN
     Route: 065
     Dates: start: 20220719, end: 20220719
  52. ZOPICLONE [Concomitant]
     Active Substance: ZOPICLONE
     Dosage: 3.75 MG, PRN
     Route: 065
     Dates: start: 20220802, end: 20220802
  53. IBUPROFEN [Concomitant]
     Active Substance: IBUPROFEN
     Indication: Product used for unknown indication
     Dosage: 400 MG, PRN
     Route: 065
     Dates: start: 20220503, end: 20220505
  54. IBUPROFEN [Concomitant]
     Active Substance: IBUPROFEN
     Dosage: 400 MG,PRN
     Route: 065
     Dates: start: 20220531, end: 20220723
  55. IBUPROFEN [Concomitant]
     Active Substance: IBUPROFEN
     Dosage: 400 MG, PRN
     Route: 065
     Dates: start: 20220802
  56. METAMIZOLE [Concomitant]
     Active Substance: METAMIZOLE
     Indication: Product used for unknown indication
     Dosage: 500 MG, PRN
     Route: 065
     Dates: start: 20220517, end: 20220519
  57. METAMIZOLE [Concomitant]
     Active Substance: METAMIZOLE
     Dosage: 500 MG,PRN
     Route: 065
     Dates: start: 20220531, end: 20220601
  58. ENTECAVIR ZENTIVA [ENTECAVIR] [Concomitant]
     Indication: Product used for unknown indication
     Dosage: 0.5 MG, QD
     Route: 065
     Dates: start: 20220712, end: 20220712
  59. DESLORATADINE [Concomitant]
     Active Substance: DESLORATADINE
     Indication: Product used for unknown indication
     Dosage: 10 MG, QD
     Route: 065
     Dates: start: 20220614, end: 20220614
  60. DESLORATADINE [Concomitant]
     Active Substance: DESLORATADINE
     Dosage: 5 MG, QD
     Route: 065
     Dates: start: 20220719, end: 20220719
  61. DESLORATADINE [Concomitant]
     Active Substance: DESLORATADINE
     Dosage: 5 MG, QD
     Route: 065
     Dates: start: 20220802, end: 20220802
  62. MOMETASONE FUROATE [Concomitant]
     Active Substance: MOMETASONE FUROATE
     Indication: Cutaneous T-cell lymphoma
     Dosage: 1 MG, PRN
     Route: 065
     Dates: start: 20210401
  63. CHOLESTYRAMINE [Concomitant]
     Active Substance: CHOLESTYRAMINE
     Indication: Product used for unknown indication
     Dosage: 4 G, BID
     Route: 065
     Dates: start: 20221107
  64. PANGROL [PANCREATIN] [Concomitant]
     Indication: Product used for unknown indication
     Dosage: (2 KAPSELN)  TID
     Route: 065
     Dates: start: 20220915

REACTIONS (1)
  - Pancreatitis [Unknown]

NARRATIVE: CASE EVENT DATE: 20220907
